FAERS Safety Report 24412657 (Version 1)
Quarter: 2024Q4

REPORT INFORMATION
  Report Type: Spontaneous
  Country: FR (occurrence: FR)
  Receive Date: 20241008
  Receipt Date: 20241008
  Transmission Date: 20250115
  Serious: Yes (Other)
  Sender: ELI LILLY AND CO
  Company Number: None

PATIENT
  Age: 30 Year
  Sex: Male
  Weight: 92 kg

DRUGS (1)
  1. LYUMJEV [Suspect]
     Active Substance: INSULIN LISPRO-AABC
     Indication: Type 1 diabetes mellitus
     Dosage: UNK UNK, UNKNOWN (CONTINUOUSLY VIA AN INSULIN PUMP)
     Route: 058
     Dates: start: 20230714, end: 20240914

REACTIONS (5)
  - Paralysis [Recovered/Resolved]
  - Administration site induration [Recovering/Resolving]
  - Migraine [Recovered/Resolved]
  - Wrong technique in product usage process [Unknown]
  - Infusion site pain [Recovering/Resolving]

NARRATIVE: CASE EVENT DATE: 20240914
